FAERS Safety Report 7321589-9 (Version None)
Quarter: 2011Q1

REPORT INFORMATION
  Report Type: 
  Country: None (occurrence: None)
  Receive Date: 20110228
  Receipt Date: 20100726
  Transmission Date: 20110831
  Serious: No
  Sender: FDA-Public Use
  Company Number: A0868169A

PATIENT
  Age: 33 Year
  Sex: Female

DRUGS (2)
  1. VALTREX [Suspect]
     Indication: GENITAL HERPES
     Dosage: 500MG PER DAY
     Route: 048
     Dates: start: 20000101
  2. IBUPROFEN [Concomitant]

REACTIONS (7)
  - PARAESTHESIA [None]
  - OEDEMA PERIPHERAL [None]
  - ADVERSE EVENT [None]
  - FATIGUE [None]
  - PRURITUS [None]
  - PAIN IN EXTREMITY [None]
  - MUSCULAR WEAKNESS [None]
